FAERS Safety Report 12574312 (Version 2)
Quarter: 2017Q3

REPORT INFORMATION
  Report Type: Spontaneous
  Country: JP (occurrence: JP)
  Receive Date: 20160720
  Receipt Date: 20170712
  Transmission Date: 20171127
  Serious: Yes (Other)
  Sender: FDA-Public Use
  Company Number: JP-JNJFOC-20160713779

PATIENT

DRUGS (4)
  1. METHOTREXATE. [Concomitant]
     Active Substance: METHOTREXATE
     Route: 065
  2. BILASTINE [Concomitant]
     Active Substance: BILASTINE
     Route: 065
  3. SIMPONI [Suspect]
     Active Substance: GOLIMUMAB
     Indication: RHEUMATOID ARTHRITIS
     Route: 058
  4. BUCILLAMINE [Concomitant]
     Active Substance: BUCILLAMINE
     Route: 065

REACTIONS (6)
  - Off label use [Unknown]
  - Neoplasm [Unknown]
  - Drug effect incomplete [Unknown]
  - Neoplasm malignant [Unknown]
  - Pneumonia bacterial [Unknown]
  - Incorrect dose administered [Unknown]
